FAERS Safety Report 7607743-7 (Version None)
Quarter: 2011Q3

REPORT INFORMATION
  Report Type: 
  Country: None (occurrence: None)
  Receive Date: 20110713
  Receipt Date: 20110601
  Transmission Date: 20111222
  Serious: Yes (Hospitalization)
  Sender: FDA-Public Use
  Company Number: PHHY2011TW49061

PATIENT
  Sex: Female
  Weight: 48 kg

DRUGS (4)
  1. FLUCONAZOLE [Concomitant]
     Dosage: 400 MG, QD
  2. GANCICLOVIR [Concomitant]
     Dosage: 250 MG, Q10H
  3. EXJADE [Suspect]
  4. MEROPENEM [Concomitant]
     Dosage: 2 G, Q8H

REACTIONS (3)
  - PNEUMONIA [None]
  - PYREXIA [None]
  - ENTEROCOLITIS [None]
